FAERS Safety Report 5351635-3 (Version None)
Quarter: 2007Q2

REPORT INFORMATION
  Report Type: 
  Country: None (occurrence: None)
  Receive Date: 20070521
  Receipt Date: 20060810
  Transmission Date: 20071010
  Serious: Yes (Hospitalization, Other)
  Sender: FDA-Public Use
  Company Number: PERD20060007

PATIENT
  Age: 54 Year
  Sex: Male
  Weight: 95.2554 kg

DRUGS (2)
  1. PERCODAN [Suspect]
     Indication: PAIN
     Dosage: 15 TABLETS DAILY, PER ORAL
     Route: 048
     Dates: start: 20030101, end: 20040201
  2. NAPROSYN [Concomitant]

REACTIONS (3)
  - ASTHENIA [None]
  - GASTROINTESTINAL HAEMORRHAGE [None]
  - INSOMNIA [None]
